FAERS Safety Report 4611232-1 (Version None)
Quarter: 2005Q1

REPORT INFORMATION
  Report Type: 
  Country: None (occurrence: None)
  Receive Date: 20050315
  Receipt Date: 20050315
  Transmission Date: 20050727
  Serious: Yes (Hospitalization)
  Sender: FDA-Public Use
  Company Number: None

PATIENT
  Age: 63 Year
  Sex: Female
  Weight: 49.1 kg

DRUGS (1)
  1. ALIMTA [Suspect]
     Indication: THYMOMA MALIGNANT
     Dosage: 500 MG/M2 Q 21 IV
     Route: 042
     Dates: start: 20050222

REACTIONS (3)
  - ATRIAL FLUTTER [None]
  - CONDUCTION DISORDER [None]
  - DYSPNOEA [None]
